FAERS Safety Report 13896384 (Version 1)
Quarter: 2017Q3

REPORT INFORMATION
  Report Type: Report from Study
  Country: JP (occurrence: JP)
  Receive Date: 20170823
  Receipt Date: 20170823
  Transmission Date: 20171127
  Serious: Yes (Hospitalization)
  Sender: FDA-Public Use
  Company Number: JP-ELI_LILLY_AND_COMPANY-JP201708006637

PATIENT
  Age: 81 Year
  Sex: Male
  Weight: 55 kg

DRUGS (6)
  1. GRANISETRON [Suspect]
     Active Substance: GRANISETRON
     Indication: PRODUCT USED FOR UNKNOWN INDICATION
  2. RAMUCIRUMAB [Suspect]
     Active Substance: RAMUCIRUMAB
     Dosage: 440 MG, OTHER
     Route: 041
     Dates: start: 20161026, end: 20161109
  3. PACLITAXEL. [Suspect]
     Active Substance: PACLITAXEL
     Dosage: 40 MG, UNK
     Route: 041
     Dates: start: 20161005
  4. RAMUCIRUMAB [Suspect]
     Active Substance: RAMUCIRUMAB
     Indication: GASTRIC CANCER STAGE IV
     Dosage: 440 MG, OTHER
     Route: 041
     Dates: start: 20160907, end: 20161005
  5. PACLITAXEL. [Suspect]
     Active Substance: PACLITAXEL
     Indication: GASTRIC CANCER STAGE IV
     Dosage: 60 MG, UNK
     Route: 041
     Dates: start: 20160907, end: 20160921
  6. RAMUCIRUMAB [Suspect]
     Active Substance: RAMUCIRUMAB
     Dosage: 440 MG, OTHER
     Route: 041
     Dates: start: 20161130

REACTIONS (3)
  - Vomiting [Recovered/Resolved]
  - Ileus [Recovered/Resolved]
  - Abdominal pain [Recovered/Resolved]

NARRATIVE: CASE EVENT DATE: 20161014
